FAERS Safety Report 9921614 (Version 3)
Quarter: 2014Q2

REPORT INFORMATION
  Report Type: Spontaneous
  Country: US (occurrence: US)
  Receive Date: 20140225
  Receipt Date: 20140424
  Transmission Date: 20141212
  Serious: No
  Sender: FDA-Public Use
  Company Number: US-PFIZER INC-2014053006

PATIENT
  Age: 74 Year
  Sex: Female

DRUGS (8)
  1. ZOLOFT [Suspect]
     Dosage: UNK
  2. VANCOMYCIN HCL [Suspect]
     Dosage: UNK
  3. TRAMADOL HYDROCHLORIDE [Suspect]
     Dosage: UNK
  4. FOSAMAX [Suspect]
     Dosage: UNK
  5. MIDODRINE [Suspect]
     Dosage: UNK
  6. BENTYL [Suspect]
     Dosage: UNK
  7. PERCODAN [Suspect]
     Dosage: UNK
  8. THIOPENTAL [Suspect]
     Dosage: UNK

REACTIONS (1)
  - Drug hypersensitivity [Unknown]
